FAERS Safety Report 21864791 (Version 1)
Quarter: 2023Q1

REPORT INFORMATION
  Report Type: Spontaneous
  Country: US (occurrence: US)
  Receive Date: 20230116
  Receipt Date: 20230116
  Transmission Date: 20230417
  Serious: Yes (Other)
  Sender: FDA-Public Use
  Company Number: US-CSLP-50901038301-V12316678-8

PATIENT
  Age: 24 Year
  Sex: Female

DRUGS (1)
  1. ANTICOAGULANT SODIUM CITRATE [Suspect]
     Active Substance: SODIUM CITRATE
     Indication: Anticoagulant therapy
     Route: 050
     Dates: start: 20230108, end: 20230108

REACTIONS (7)
  - Seizure [Recovering/Resolving]
  - Hypoaesthesia [Recovering/Resolving]
  - Tetany [Recovering/Resolving]
  - Anxiety [Recovering/Resolving]
  - Tachypnoea [Recovering/Resolving]
  - Paraesthesia [Recovering/Resolving]
  - Salivary hypersecretion [Recovering/Resolving]

NARRATIVE: CASE EVENT DATE: 20230108
